FAERS Safety Report 19120488 (Version 1)
Quarter: 2021Q2

REPORT INFORMATION
  Report Type: Spontaneous
  Country: ES (occurrence: ES)
  Receive Date: 20210412
  Receipt Date: 20210412
  Transmission Date: 20210717
  Serious: Yes (Hospitalization, Other)
  Sender: FDA-Public Use
  Company Number: NVSC2021ES073714

PATIENT
  Age: 47 Year
  Sex: Female

DRUGS (3)
  1. REVOLADE [Suspect]
     Active Substance: ELTROMBOPAG OLAMINE
     Indication: IMMUNE THROMBOCYTOPENIA
     Dosage: UNK
     Route: 065
  2. REVOLADE [Suspect]
     Active Substance: ELTROMBOPAG OLAMINE
     Dosage: 75 MG, QD
     Route: 048
     Dates: start: 20200409, end: 202008
  3. REVOLADE [Suspect]
     Active Substance: ELTROMBOPAG OLAMINE
     Dosage: 50 MG, QD
     Route: 048
     Dates: start: 20181019

REACTIONS (12)
  - Intestinal ischaemia [Unknown]
  - Vomiting [Unknown]
  - Protein S deficiency [Unknown]
  - Haematoma [Unknown]
  - Optic neuritis [Unknown]
  - Nasogastric output high [Unknown]
  - Blindness [Unknown]
  - Thrombosis [Recovered/Resolved]
  - Neck pain [Unknown]
  - Intestinal obstruction [Unknown]
  - Anaemia [Unknown]
  - Nausea [Unknown]

NARRATIVE: CASE EVENT DATE: 20200810
